FAERS Safety Report 14635191 (Version 1)
Quarter: 2018Q1

REPORT INFORMATION
  Report Type: Spontaneous
  Country: US (occurrence: US)
  Receive Date: 20180314
  Receipt Date: 20180314
  Transmission Date: 20180509
  Serious: No
  Sender: FDA-Public Use
  Company Number: US-GLAXOSMITHKLINE-US2018038050

PATIENT
  Sex: Male

DRUGS (2)
  1. ABREVA [Suspect]
     Active Substance: DOCOSANOL
     Indication: ORAL HERPES
     Dosage: 4 TO 5 TIMES A DAY
  2. ABREVA [Suspect]
     Active Substance: DOCOSANOL
     Dosage: 4 TO 5 TIMES A DAY

REACTIONS (6)
  - Oral herpes [Unknown]
  - Inappropriate schedule of drug administration [Unknown]
  - Product quality issue [Unknown]
  - Paraesthesia oral [Unknown]
  - Incorrect drug administration duration [Unknown]
  - Condition aggravated [Unknown]
